FAERS Safety Report 5146692-3 (Version None)
Quarter: 2006Q4

REPORT INFORMATION
  Report Type: 
  Country: None (occurrence: None)
  Receive Date: 20061107
  Receipt Date: 20061107
  Transmission Date: 20070319
  Serious: Yes (Life-Threatening, Hospitalization)
  Sender: FDA-Public Use
  Company Number: None

PATIENT
  Sex: Male
  Weight: 101 kg

DRUGS (13)
  1. METOLAZONE [Suspect]
     Indication: POLYURIA
     Dosage: 2.5 MG EVERY 12 HOURS PO
     Route: 048
     Dates: start: 20060819, end: 20060821
  2. FOLIC ACID [Concomitant]
  3. THIAMINE [Concomitant]
  4. PANTOPRAZOLE SODIUM [Concomitant]
  5. DOCUSATE [Concomitant]
  6. OCTREOTIDE ACETATE [Concomitant]
  7. FERROUS SULFATE TAB [Concomitant]
  8. POTASSIUM CHLORIDE [Concomitant]
  9. FUROSEMIDE [Concomitant]
  10. BACITRACIN [Concomitant]
  11. MORPHINE SULFATE [Concomitant]
  12. BISACODYL [Concomitant]
  13. MORPHINE SULFATE [Concomitant]

REACTIONS (3)
  - ANGIONEUROTIC OEDEMA [None]
  - DRUG HYPERSENSITIVITY [None]
  - LARYNGEAL OEDEMA [None]
